FAERS Safety Report 12312244 (Version 1)
Quarter: 2016Q2

REPORT INFORMATION
  Report Type: Other
  Country: US (occurrence: KR)
  Receive Date: 20160428
  Receipt Date: 20160428
  Transmission Date: 20160815
  Serious: No
  Sender: FDA-Public Use
  Company Number: KR-BRECKENRIDGE PHARMACEUTICAL, INC.-1051126

PATIENT

DRUGS (1)
  1. POLYETHYLENE GLYCOL [Suspect]
     Active Substance: POLYETHYLENE GLYCOLS

REACTIONS (1)
  - Aphthous ulcer [Recovering/Resolving]
